FAERS Safety Report 5218034-6 (Version None)
Quarter: 2007Q1

REPORT INFORMATION
  Report Type: 
  Country: None (occurrence: None)
  Receive Date: 20061130
  Receipt Date: 20060816
  Transmission Date: 20070707
  Serious: Yes (Hospitalization)
  Sender: FDA-Public Use
  Company Number: US200607002628

PATIENT
  Sex: Female
  Weight: 82.1 kg

DRUGS (1)
  1. ZYPREXA [Suspect]
     Dosage: SEE IMAGE
     Dates: start: 19990101, end: 20050801

REACTIONS (2)
  - DIABETIC COMPLICATION [None]
  - METABOLIC DISORDER [None]
